FAERS Safety Report 5743157-2 (Version None)
Quarter: 2008Q2

REPORT INFORMATION
  Report Type: 
  Country: None (occurrence: None)
  Receive Date: 20080519
  Receipt Date: 20080509
  Transmission Date: 20081010
  Serious: No
  Sender: FDA-Public Use
  Company Number: US-BOEHRINGER INGELHEIM GMBH, GERMANY-2008-BP-04160BP

PATIENT
  Sex: Male

DRUGS (9)
  1. CATAPRES-TTS-1 [Suspect]
     Indication: HYPERTENSION
     Dates: start: 20080201, end: 20080407
  2. CATAPRES-TTS-1 [Suspect]
  3. AMIODARONE HCL [Concomitant]
     Indication: ATRIAL FIBRILLATION
  4. TOPROL-XL [Concomitant]
     Indication: HYPERTENSION
  5. TOPROL-XL [Concomitant]
     Indication: AORTIC DISORDER
  6. WARFARIN SODIUM [Concomitant]
     Indication: ATRIAL FIBRILLATION
  7. THYROID TAB [Concomitant]
     Indication: HYPOTHYROIDISM
  8. LOVAZA [Concomitant]
  9. KLOR-CON [Concomitant]

REACTIONS (4)
  - APPLICATION SITE DERMATITIS [None]
  - APPLICATION SITE PRURITUS [None]
  - BRADYCARDIA [None]
  - THERAPEUTIC RESPONSE DECREASED [None]
